FAERS Safety Report 8827372 (Version 1)
Quarter: 2012Q4

REPORT INFORMATION
  Report Type: 
  Country: US (occurrence: US)
  Receive Date: 20121005
  Receipt Date: 20121005
  Transmission Date: 20130627
  Serious: No
  Sender: FDA-Public Use
  Company Number: US-BRISTOL-MYERS SQUIBB COMPANY-16235780

PATIENT
  Age: 63 Year
  Sex: Male
  Weight: 87.07 kg

DRUGS (2)
  1. AVALIDE TABS 150MG/12.5MG [Suspect]
     Indication: HYPERTENSION
     Dosage: started two years ago
     Dates: end: 201107
  2. AVAPRO TABS 150 MG [Suspect]
     Indication: HYPERTENSION
     Dates: start: 201107

REACTIONS (4)
  - Sluggishness [Not Recovered/Not Resolved]
  - Dehydration [Not Recovered/Not Resolved]
  - Nocturia [Not Recovered/Not Resolved]
  - Drug ineffective [Not Recovered/Not Resolved]
